FAERS Safety Report 24946398 (Version 2)
Quarter: 2025Q2

REPORT INFORMATION
  Report Type: Spontaneous
  Country: JP (occurrence: JP)
  Receive Date: 20250210
  Receipt Date: 20250527
  Transmission Date: 20250717
  Serious: Yes (Hospitalization, Other)
  Sender: NOVO NORDISK
  Company Number: JP-NOVOPROD-1364298

PATIENT
  Age: 14 Year
  Sex: Male

DRUGS (2)
  1. COAGULATION FACTOR IX (RECOMBINANT), GLYCOPEGYLATED [Suspect]
     Active Substance: COAGULATION FACTOR IX (RECOMBINANT), GLYCOPEGYLATED
     Dosage: 40 IU/KG (DOSE INCREASED)
     Route: 042
     Dates: start: 202501
  2. COAGULATION FACTOR IX (RECOMBINANT), GLYCOPEGYLATED [Suspect]
     Active Substance: COAGULATION FACTOR IX (RECOMBINANT), GLYCOPEGYLATED
     Indication: Factor IX deficiency
     Dosage: 2000 IU, TIW
     Route: 042

REACTIONS (2)
  - Upper limb fracture [Recovering/Resolving]
  - Post procedural haemorrhage [Unknown]

NARRATIVE: CASE EVENT DATE: 20250101
